FAERS Safety Report 8897062 (Version 1)
Quarter: 2012Q4

REPORT INFORMATION
  Report Type: 
  Country: US (occurrence: US)
  Receive Date: 20121108
  Receipt Date: 20121108
  Transmission Date: 20130627
  Serious: No
  Sender: FDA-Public Use
  Company Number: US-AMGEN-USASP2012029778

PATIENT
  Age: 51 Year
  Sex: Female
  Weight: 57.14 kg

DRUGS (11)
  1. ENBREL [Suspect]
     Indication: PRODUCT USED FOR UNKNOWN INDICATION
     Dosage: 50 mg, qwk
     Route: 058
  2. AMBIEN [Concomitant]
     Dosage: 5 mg, UNK
  3. FUROSEMIDE [Concomitant]
     Dosage: 20 mg, UNK
  4. PREDNISONE [Concomitant]
     Dosage: 1 mg, UNK
  5. ARAVA [Concomitant]
     Dosage: 10 mg, UNK
  6. FOLIC ACID [Concomitant]
     Dosage: 1 mg, UNK
  7. SALSALATE [Concomitant]
     Dosage: 500 mg, UNK
  8. IMITREX                            /01044801/ [Concomitant]
     Dosage: 25 mg, UNK
  9. NEXIUM                             /01479302/ [Concomitant]
     Dosage: 20 mg, UNK
  10. TYLENOL /00020001/ [Concomitant]
     Dosage: 325 mg, UNK
  11. METHOTREXATE [Concomitant]

REACTIONS (1)
  - Therapeutic response decreased [Unknown]
